FAERS Safety Report 4718022-X (Version None)
Quarter: 2005Q3

REPORT INFORMATION
  Report Type: 
  Country: None (occurrence: None)
  Receive Date: 20050718
  Receipt Date: 20050318
  Transmission Date: 20060218
  Serious: No
  Sender: FDA-Public Use
  Company Number: 2005000576

PATIENT
  Age: 68 Year
  Sex: Female
  Weight: 70.3075 kg

DRUGS (4)
  1. TARCEVA [Suspect]
     Indication: NON-SMALL CELL LUNG CANCER
     Dosage: 150 MG (QD), ORAL
     Route: 048
     Dates: start: 20050304
  2. PRILOSEC [Concomitant]
  3. ZOCOR [Concomitant]
  4. ENTEX PSE (RESPAIRE-SR-120) [Concomitant]

REACTIONS (5)
  - CHROMATURIA [None]
  - DIARRHOEA [None]
  - DYSPEPSIA [None]
  - STOMACH DISCOMFORT [None]
  - VAGINAL DISCHARGE [None]
